APPROVED DRUG PRODUCT: TESTOSTERONE ENANTHATE
Active Ingredient: TESTOSTERONE ENANTHATE
Strength: 200MG/ML
Dosage Form/Route: INJECTABLE;INJECTION
Application: A212659 | Product #001 | TE Code: AO
Applicant: EUGIA PHARMA SPECIALITIES LTD
Approved: Feb 28, 2024 | RLD: No | RS: No | Type: RX